FAERS Safety Report 17994251 (Version 3)
Quarter: 2020Q4

REPORT INFORMATION
  Report Type: Spontaneous
  Country: US (occurrence: US)
  Receive Date: 20200708
  Receipt Date: 20201117
  Transmission Date: 20210113
  Serious: No
  Sender: FDA-Public Use
  Company Number: US-PFIZER INC-2020260736

PATIENT
  Age: 74 Year
  Sex: Female
  Weight: 77.11 kg

DRUGS (3)
  1. IBRANCE [Suspect]
     Active Substance: PALBOCICLIB
     Indication: BREAST CANCER METASTATIC
     Dosage: UNK, CYCLIC (TWO WEEKS ON AND ONE WEEK OFF)
  2. IBRANCE [Suspect]
     Active Substance: PALBOCICLIB
     Dosage: 75 MG, DAILY
     Route: 048
     Dates: start: 20201026, end: 20201031
  3. IBRANCE [Suspect]
     Active Substance: PALBOCICLIB
     Indication: BREAST CANCER STAGE IV
     Dosage: UNK [100MG IN 3 CYCLES]

REACTIONS (5)
  - Illness [Unknown]
  - Feeling abnormal [Unknown]
  - Dizziness [Unknown]
  - Feeling drunk [Recovering/Resolving]
  - Intentional product use issue [Unknown]
